APPROVED DRUG PRODUCT: DIMENHYDRINATE
Active Ingredient: DIMENHYDRINATE
Strength: 50MG/ML
Dosage Form/Route: INJECTABLE;INJECTION
Application: A040519 | Product #001
Applicant: FRESENIUS KABI USA LLC
Approved: Jun 23, 2004 | RLD: No | RS: Yes | Type: RX